FAERS Safety Report 5414556-3 (Version None)
Quarter: 2007Q3

REPORT INFORMATION
  Report Type: 
  Country: None (occurrence: None)
  Receive Date: 20070713
  Receipt Date: 20070508
  Transmission Date: 20080115
  Serious: Yes (Hospitalization)
  Sender: FDA-Public Use
  Company Number: US-JNJFOC-20070106763

PATIENT
  Age: 37 Year
  Sex: Female
  Weight: 74.8435 kg

DRUGS (6)
  1. ORTHO EVRA [Suspect]
     Indication: CONTRACEPTION
     Dosage: TRANSDERMAL
     Route: 062
     Dates: start: 20050601
  2. ORTHO TRI-CYCLEN [Suspect]
     Indication: CONTRACEPTION
  3. NEURONTIN [Concomitant]
  4. ALLEGRA [Concomitant]
  5. AMITRIPTYLINE HCL [Concomitant]
  6. AMBIEN [Concomitant]

REACTIONS (1)
  - CEREBELLAR INFARCTION [None]
